FAERS Safety Report 10051158 (Version 1)
Quarter: 2014Q2

REPORT INFORMATION
  Report Type: Spontaneous
  Country: CO (occurrence: CO)
  Receive Date: 20140401
  Receipt Date: 20140401
  Transmission Date: 20141212
  Serious: Yes (Other)
  Sender: FDA-Public Use
  Company Number: CO-VERTEX PHARMACEUTICALS INC-2014-001713

PATIENT
  Age: 55 Year
  Sex: Male
  Weight: 74 kg

DRUGS (3)
  1. INCIVO [Suspect]
     Indication: HEPATITIS C
     Dosage: 375 MG,
     Route: 048
     Dates: start: 20140212
  2. RIBAVIRIN [Concomitant]
     Indication: HEPATITIS C
     Dosage: 200 MG, 5 TIMES A DAY
     Route: 048
     Dates: start: 20140212
  3. PEGYLATED INTERFERON ALFA-2A [Concomitant]
     Indication: HEPATITIS C
     Dosage: 180 ?G, QW
     Route: 058
     Dates: start: 20140212

REACTIONS (4)
  - Abdominal pain [Unknown]
  - Discomfort [Unknown]
  - Asthenia [Unknown]
  - Diarrhoea [Unknown]
